FAERS Safety Report 10510009 (Version 1)
Quarter: 2014Q4

REPORT INFORMATION
  Report Type: Spontaneous
  Country: US (occurrence: None)
  Receive Date: 20141009
  Receipt Date: 20141009
  Transmission Date: 20150528
  Serious: Yes (Hospitalization)
  Sender: FDA-Public Use
  Company Number: None

PATIENT
  Age: 4 Year
  Sex: Male
  Weight: 20 kg

DRUGS (5)
  1. DEXAMETHASONE. [Suspect]
     Active Substance: DEXAMETHASONE
     Dates: end: 20140918
  2. VINCRISTINE SULFATE. [Suspect]
     Active Substance: VINCRISTINE SULFATE
     Dates: end: 20140919
  3. METHOTREXATE [Suspect]
     Active Substance: METHOTREXATE
     Dates: end: 20140912
  4. ONCASPAR [Suspect]
     Active Substance: PEGASPARGASE
     Dates: end: 20140908
  5. DAUNORUBICIN [Suspect]
     Active Substance: DAUNORUBICIN
     Dates: end: 20140919

REACTIONS (8)
  - Ileus [None]
  - Cardiopulmonary failure [None]
  - Respiratory failure [None]
  - Respiratory tract infection fungal [None]
  - Pulmonary oedema [None]
  - Zygomycosis [None]
  - Respiratory distress [None]
  - Hypoglycaemic seizure [None]

NARRATIVE: CASE EVENT DATE: 20140919
